FAERS Safety Report 23321176 (Version 1)
Quarter: 2023Q4

REPORT INFORMATION
  Report Type: Spontaneous
  Country: US (occurrence: US)
  Receive Date: 20231220
  Receipt Date: 20231220
  Transmission Date: 20240110
  Serious: No
  Sender: FDA-Public Use
  Company Number: US-BAYER-2023A178616

PATIENT
  Age: 92 Year
  Sex: Female

DRUGS (1)
  1. MIRALAX [Suspect]
     Active Substance: POLYETHYLENE GLYCOL 3350
     Indication: Bladder disorder
     Dosage: 1 DOSE IN THE MORNING AND 1 DOSE AT NIGHT DOSE
     Route: 048

REACTIONS (4)
  - Incorrect dose administered [Unknown]
  - Product prescribing error [Unknown]
  - Frequent bowel movements [Unknown]
  - Off label use [Unknown]

NARRATIVE: CASE EVENT DATE: 20220101
